FAERS Safety Report 5239515-5 (Version None)
Quarter: 2007Q1

REPORT INFORMATION
  Report Type: 
  Country: None (occurrence: None)
  Receive Date: 20070212
  Receipt Date: 20070129
  Transmission Date: 20070707
  Serious: Yes (Hospitalization)
  Sender: FDA-Public Use
  Company Number: GXKR2006FR08427

PATIENT
  Age: 77 Year
  Sex: Female

DRUGS (7)
  1. AMOXICILLIN [Suspect]
     Indication: BRONCHITIS
     Dosage: 2 G
     Dates: start: 20061208
  2. SURBRONC (AMBROXOL HYDROCHLORIDE) [Concomitant]
  3. PREDNISOLONE [Concomitant]
  4. BRONCHODUAL (FENOTEROL HYDROBROMIDE, IPRATROPIUM BROMIDE) [Concomitant]
  5. COZAAR [Concomitant]
  6. LASIX [Concomitant]
  7. KARDEGIC (ACETYLSALICYLATE LYSINE) [Concomitant]

REACTIONS (2)
  - DIARRHOEA HAEMORRHAGIC [None]
  - LEUKOCYTOSIS [None]
